APPROVED DRUG PRODUCT: CLOBAZAM
Active Ingredient: CLOBAZAM
Strength: 2.5MG/ML
Dosage Form/Route: SUSPENSION;ORAL
Application: A210746 | Product #001
Applicant: VISTAPHARM LLC
Approved: Jul 10, 2019 | RLD: No | RS: No | Type: DISCN